FAERS Safety Report 9103528 (Version 12)
Quarter: 2022Q3

REPORT INFORMATION
  Report Type: Spontaneous
  Country: US (occurrence: US)
  Receive Date: 20130218
  Receipt Date: 20220821
  Transmission Date: 20221027
  Serious: Yes (Hospitalization, Other)
  Sender: FDA-Public Use
  Company Number: US-GLAXOSMITHKLINE-A1009217A

PATIENT
  Age: 77 Year
  Sex: Female

DRUGS (3)
  1. VOTRIENT [Suspect]
     Active Substance: PAZOPANIB HYDROCHLORIDE
     Indication: Hepatic cancer
     Dosage: (4) 200 MG TABLETS
     Route: 048
     Dates: start: 20111105
  2. VOTRIENT [Suspect]
     Active Substance: PAZOPANIB HYDROCHLORIDE
     Indication: Renal cancer
     Dosage: 200 MG, U
  3. UNSPECIFIED INGREDIENT [Suspect]
     Active Substance: UNSPECIFIED INGREDIENT
     Indication: Blood pressure measurement

REACTIONS (9)
  - Loss of consciousness [Recovered/Resolved]
  - Back injury [Unknown]
  - Malaise [Unknown]
  - Dizziness [Recovering/Resolving]
  - Asthenia [Unknown]
  - Fall [Unknown]
  - Nausea [Unknown]
  - Underdose [Unknown]
  - Product dose omission issue [Unknown]

NARRATIVE: CASE EVENT DATE: 20130122
